FAERS Safety Report 6316615-X (Version None)
Quarter: 2009Q3

REPORT INFORMATION
  Report Type: 
  Country: None (occurrence: None)
  Receive Date: 20090820
  Receipt Date: 20090810
  Transmission Date: 20100115
  Serious: Yes (Hospitalization)
  Sender: FDA-Public Use
  Company Number: BE-ABBOTT-09P-013-0586722-00

PATIENT
  Age: 20 Year
  Sex: Female

DRUGS (2)
  1. REDUCTIL [Suspect]
     Indication: DRUG USE FOR UNKNOWN INDICATION
     Dosage: INTAKE OF DRUG WAS IRREGULAR
     Dates: start: 20080701, end: 20090601
  2. CONTRACEPTIVE DRUG [Concomitant]
     Indication: DRUG USE FOR UNKNOWN INDICATION

REACTIONS (5)
  - HYPERTENSION [None]
  - HYPERTHERMIA [None]
  - POLYSEROSITIS [None]
  - RENAL FAILURE [None]
  - THROMBOCYTOPENIC PURPURA [None]
